FAERS Safety Report 21586715 (Version 2)
Quarter: 2023Q1

REPORT INFORMATION
  Report Type: Report from Study
  Country: US (occurrence: US)
  Receive Date: 20221113
  Receipt Date: 20230209
  Transmission Date: 20230418
  Serious: No
  Sender: FDA-Public Use
  Company Number: US-SA-SAC20221110001195

PATIENT
  Age: 79 Year
  Sex: Male

DRUGS (2)
  1. JEVTANA [Suspect]
     Active Substance: CABAZITAXEL
     Indication: Bladder cancer
     Dosage: 60MG/1.5ML, Q6W
     Route: 043
     Dates: start: 20220728
  2. JEVTANA [Suspect]
     Active Substance: CABAZITAXEL
     Dosage: 60MG/1.5ML, Q6W
     Route: 041
     Dates: start: 20220728

REACTIONS (3)
  - Weight decreased [Unknown]
  - Weight increased [Recovered/Resolved]
  - Product use in unapproved indication [Unknown]

NARRATIVE: CASE EVENT DATE: 20230207
